FAERS Safety Report 6855967-9 (Version None)
Quarter: 2010Q3

REPORT INFORMATION
  Report Type: 
  Country: None (occurrence: None)
  Receive Date: 20100719
  Receipt Date: 20100709
  Transmission Date: 20110219
  Serious: Yes (Death)
  Sender: FDA-Public Use
  Company Number: JP-BAXTER-2009BH018255

PATIENT
  Age: 89 Year
  Sex: Female
  Weight: 50 kg

DRUGS (13)
  1. FEIBA VH IMMUNO [Suspect]
     Indication: ACQUIRED HAEMOPHILIA
     Route: 042
     Dates: start: 20091101, end: 20091103
  2. FEIBA VH IMMUNO [Suspect]
     Route: 042
     Dates: start: 20091109, end: 20091109
  3. FEIBA VH IMMUNO [Suspect]
     Route: 042
     Dates: start: 20091008, end: 20091010
  4. FEIBA VH IMMUNO [Suspect]
     Route: 042
     Dates: start: 20091016, end: 20091018
  5. FEIBA VH IMMUNO [Suspect]
     Route: 042
     Dates: start: 20091022, end: 20091024
  6. CEFOPERAZONE SODIUM/SULBACTAM SODIUM [Concomitant]
     Indication: INFECTION
     Route: 042
     Dates: start: 20091109
  7. PREDONINE [Concomitant]
     Indication: IMMUNOSUPPRESSION
     Route: 042
     Dates: start: 20091007, end: 20091108
  8. FAMOTIDINE [Concomitant]
     Indication: PROPHYLAXIS
     Route: 042
     Dates: start: 20091107, end: 20091108
  9. ADONA [Concomitant]
     Indication: HAEMORRHAGE PROPHYLAXIS
     Route: 042
     Dates: start: 20090101
  10. FLUCONAZOLE [Concomitant]
     Route: 048
     Dates: start: 20091007, end: 20091108
  11. ISONIAZID [Concomitant]
     Indication: INFECTION PROPHYLAXIS
     Route: 048
     Dates: start: 20091007, end: 20091108
  12. ITRIZOLE [Concomitant]
     Indication: INFECTION PROPHYLAXIS
     Route: 048
     Dates: start: 20091007, end: 20091108
  13. LORCAM [Concomitant]
     Indication: PAIN
     Route: 048
     Dates: start: 20091001, end: 20091108

REACTIONS (1)
  - CEREBRAL HAEMORRHAGE [None]
